FAERS Safety Report 24862054 (Version 1)
Quarter: 2025Q1

REPORT INFORMATION
  Report Type: Spontaneous
  Country: US (occurrence: None)
  Receive Date: 20250120
  Receipt Date: 20250120
  Transmission Date: 20250409
  Serious: Yes (Hospitalization)
  Sender: ENCUBE ETHICALS
  Company Number: US-Encube-001612

PATIENT
  Age: 82 Year
  Sex: Male

DRUGS (6)
  1. TRIAMCINOLONE ACETONIDE [Suspect]
     Active Substance: TRIAMCINOLONE ACETONIDE
     Indication: Cystoid macular oedema
  2. RITONAVIR [Suspect]
     Active Substance: RITONAVIR
     Indication: HIV infection
  3. DARUNAVIR [Suspect]
     Active Substance: DARUNAVIR
     Indication: HIV infection
  4. DEXAMETHASONE [Concomitant]
     Active Substance: DEXAMETHASONE
     Route: 048
  5. KETOROLAC [Concomitant]
     Active Substance: KETOROLAC TROMETHAMINE
     Indication: Cystoid macular oedema
  6. PREDNISOLONE [Concomitant]
     Active Substance: PREDNISOLONE
     Indication: Cystoid macular oedema

REACTIONS (5)
  - Pseudo Cushing^s syndrome [Recovered/Resolved]
  - Off label use [Unknown]
  - Adrenal insufficiency [Recovered/Resolved]
  - Drug interaction [Unknown]
  - Skin atrophy [Unknown]
